FAERS Safety Report 15643985 (Version 1)
Quarter: 2018Q4

REPORT INFORMATION
  Report Type: Spontaneous
  Country: ZA (occurrence: ZA)
  Receive Date: 20181121
  Receipt Date: 20181121
  Transmission Date: 20190205
  Serious: Yes (Hospitalization)
  Sender: FDA-Public Use
  Company Number: ZA-PFIZER INC-2018462553

PATIENT
  Age: 71 Year
  Sex: Male

DRUGS (8)
  1. LOMANOR [Suspect]
     Active Substance: AMLODIPINE BESYLATE
     Dosage: 5 MG, UNK
  2. CARVETREND [Suspect]
     Active Substance: CARVEDILOL
     Dosage: 12.5 MG, UNK
  3. ADCO ZOPIMED [Suspect]
     Active Substance: ZOPICLONE
     Dosage: 7.5 MG, UNK
  4. MYLAN PANTOPRAZOLE [Suspect]
     Active Substance: PANTOPRAZOLE SODIUM
     Dosage: 20 MG, UNK
  5. COXLEON [Suspect]
     Active Substance: CELECOXIB
     Dosage: 200 MG, UNK
  6. CO-IRBEWIN [Suspect]
     Active Substance: HYDROCHLOROTHIAZIDE\IRBESARTAN
     Dosage: 300/12.5 MG, UNK
  7. RANFLOCS [Suspect]
     Active Substance: FLUOXETINE HYDROCHLORIDE
     Dosage: 20 MG, UNK
  8. FLONASE [MOMETASONE FUROATE] [Suspect]
     Active Substance: MOMETASONE FUROATE
     Dosage: 50 UG, UNK

REACTIONS (1)
  - Road traffic accident [Unknown]

NARRATIVE: CASE EVENT DATE: 201810
